FAERS Safety Report 17565459 (Version 4)
Quarter: 2020Q3

REPORT INFORMATION
  Report Type: Spontaneous
  Country: US (occurrence: US)
  Receive Date: 20200320
  Receipt Date: 20200925
  Transmission Date: 20201102
  Serious: No
  Sender: FDA-Public Use
  Company Number: US-PFIZER INC-2020119635

PATIENT
  Age: 54 Year
  Sex: Female

DRUGS (1)
  1. XELJANZ XR [Suspect]
     Active Substance: TOFACITINIB CITRATE
     Dosage: 11 MG, UNK

REACTIONS (15)
  - Drug ineffective [Unknown]
  - Insomnia [Unknown]
  - Psychiatric symptom [Unknown]
  - Stress [Unknown]
  - Fatigue [Unknown]
  - Cough [Unknown]
  - Peripheral swelling [Unknown]
  - Fibromyalgia [Unknown]
  - Gait disturbance [Unknown]
  - Illness [Unknown]
  - Arthralgia [Unknown]
  - Decreased appetite [Unknown]
  - Weight decreased [Unknown]
  - Depression [Unknown]
  - Sinusitis [Unknown]
